FAERS Safety Report 19585069 (Version 3)
Quarter: 2021Q3

REPORT INFORMATION
  Report Type: Spontaneous
  Country: US (occurrence: US)
  Receive Date: 20210720
  Receipt Date: 20210810
  Transmission Date: 20211014
  Serious: Yes (Other)
  Sender: FDA-Public Use
  Company Number: US-BAYER-2021-132633

PATIENT
  Age: 25 Year
  Sex: Male

DRUGS (3)
  1. JIVI [Suspect]
     Active Substance: DAMOCTOCOG ALFA PEGOL
     Dosage: 2400 IU
     Route: 042
  2. JIVI [Suspect]
     Active Substance: DAMOCTOCOG ALFA PEGOL
     Dosage: 2 DF, ONCE, FOR ACCIDENT AT WORK
     Route: 042
  3. JIVI [Suspect]
     Active Substance: DAMOCTOCOG ALFA PEGOL
     Dosage: 2400 IU, PRN, FOR THE LEFT ELBOW BLEED TREATMENT
     Route: 042

REACTIONS (4)
  - Limb injury [Recovered/Resolved]
  - Haemarthrosis [None]
  - Haemarthrosis [Recovered/Resolved]
  - Accident at work [Recovered/Resolved]

NARRATIVE: CASE EVENT DATE: 20210402
